FAERS Safety Report 9014813 (Version 1)
Quarter: 2013Q1

REPORT INFORMATION
  Report Type: Spontaneous
  Country: CZ (occurrence: CZ)
  Receive Date: 20130116
  Receipt Date: 20130116
  Transmission Date: 20140127
  Serious: Yes (Other)
  Sender: FDA-Public Use
  Company Number: CZ-AMGEN-CZESP2013001715

PATIENT
  Age: 59 Year
  Sex: Female

DRUGS (8)
  1. PROLIA [Suspect]
     Indication: OSTEOPOROSIS POSTMENOPAUSAL
     Dosage: 60 MG, UNK
     Route: 058
     Dates: start: 20120625
  2. ZOCOR [Concomitant]
  3. NEURONTIN [Concomitant]
  4. VITAMIN E                          /00110501/ [Concomitant]
  5. VITAMIN AD [Concomitant]
  6. VITACALCIN [Concomitant]
  7. TRALGIT [Concomitant]
  8. CLARITIN                           /00413701/ [Concomitant]

REACTIONS (25)
  - Arthralgia [Unknown]
  - Leukocyturia [Not Recovered/Not Resolved]
  - Urinary tract inflammation [Not Recovered/Not Resolved]
  - Nausea [Not Recovered/Not Resolved]
  - Diarrhoea [Not Recovered/Not Resolved]
  - Gastrointestinal pain [Not Recovered/Not Resolved]
  - Flushing [Unknown]
  - Genital disorder female [Unknown]
  - Cataract [Unknown]
  - Nail disorder [Unknown]
  - Back pain [Unknown]
  - Asthenia [Unknown]
  - Bone pain [Unknown]
  - Constipation [Not Recovered/Not Resolved]
  - Myalgia [Not Recovered/Not Resolved]
  - Hyperhidrosis [Unknown]
  - Migraine [Unknown]
  - Insomnia [Unknown]
  - Dysuria [Unknown]
  - Pollakiuria [Unknown]
  - Onychoclasis [Unknown]
  - Musculoskeletal stiffness [Unknown]
  - Dyspepsia [Not Recovered/Not Resolved]
  - Food intolerance [Not Recovered/Not Resolved]
  - Rash [Unknown]
